FAERS Safety Report 6546843-X (Version None)
Quarter: 2010Q1

REPORT INFORMATION
  Report Type: 
  Country: None (occurrence: None)
  Receive Date: 20100122
  Receipt Date: 20100118
  Transmission Date: 20100710
  Serious: Yes (Life-Threatening, Hospitalization, Disabling)
  Sender: FDA-Public Use
  Company Number: CA-CELGENEUS-028-21880-09090423

PATIENT
  Sex: Male

DRUGS (5)
  1. REVLIMID [Suspect]
     Indication: MULTIPLE MYELOMA
     Route: 048
     Dates: start: 20071101, end: 20090821
  2. SYNTHROID [Concomitant]
     Indication: HYPOTHYROIDISM
     Route: 065
  3. GABAPENTIN [Concomitant]
     Indication: POST HERPETIC NEURALGIA
     Route: 065
     Dates: start: 20090709
  4. DILAUDID [Concomitant]
     Indication: POST HERPETIC NEURALGIA
     Dosage: 2-4MG
     Route: 065
     Dates: start: 20090709
  5. DECADRON [Concomitant]
     Indication: DRUG USE FOR UNKNOWN INDICATION
     Route: 048
     Dates: start: 20090716, end: 20090723

REACTIONS (2)
  - HERPES ZOSTER DISSEMINATED [None]
  - PNEUMONIA [None]
